FAERS Safety Report 12270535 (Version 1)
Quarter: 2016Q2

REPORT INFORMATION
  Report Type: Spontaneous
  Country: US (occurrence: None)
  Receive Date: 20160414
  Receipt Date: 20160414
  Transmission Date: 20160815
  Serious: No
  Sender: FDA-Public Use
  Company Number: None

PATIENT
  Age: 47 Year
  Sex: Female
  Weight: 68.04 kg

DRUGS (10)
  1. PLAQUENIL [Suspect]
     Active Substance: HYDROXYCHLOROQUINE SULFATE
     Indication: SYSTEMIC LUPUS ERYTHEMATOSUS
     Dosage: 50 TABLET(S) TWICE A DAY TAKEN BY MOUTH
     Route: 048
     Dates: start: 20150809, end: 20151009
  2. ZINC [Concomitant]
     Active Substance: ZINC\ZINC CHLORIDE
  3. IRON [Concomitant]
     Active Substance: IRON
  4. BIOTIN [Concomitant]
     Active Substance: BIOTIN
  5. EFFEXOR [Concomitant]
     Active Substance: VENLAFAXINE HYDROCHLORIDE
  6. TRAZODONE [Concomitant]
     Active Substance: TRAZODONE HYDROCHLORIDE
  7. OMEGA-3 FA [Concomitant]
  8. SELENIUM [Concomitant]
     Active Substance: SELENIUM
  9. QUINACRINE [Concomitant]
     Active Substance: QUINACRINE
  10. SILICA [Concomitant]
     Active Substance: SILICON DIOXIDE

REACTIONS (3)
  - No therapeutic response [None]
  - Pruritus generalised [None]
  - Impaired work ability [None]

NARRATIVE: CASE EVENT DATE: 20151001
